FAERS Safety Report 9999715 (Version 2)
Quarter: 2014Q1

REPORT INFORMATION
  Report Type: Spontaneous
  Country: US (occurrence: US)
  Receive Date: 20140312
  Receipt Date: 20140312
  Transmission Date: 20141002
  Serious: No
  Sender: FDA-Public Use
  Company Number: US-ASTRAZENECA-2012SE83657

PATIENT
  Age: 76 Year
  Sex: Female
  Weight: 68.9 kg

DRUGS (9)
  1. NEXIUM [Suspect]
     Indication: GASTROOESOPHAGEAL REFLUX DISEASE
     Route: 048
     Dates: start: 2011, end: 201402
  2. NEXIUM [Suspect]
     Indication: ULCER
     Route: 048
     Dates: start: 2011, end: 201402
  3. NEXIUM [Suspect]
     Indication: ABDOMINAL DISCOMFORT
     Route: 048
     Dates: start: 2011, end: 201402
  4. PLAVIX [Concomitant]
  5. SYNTHROID [Concomitant]
  6. PAIN MEDICATION [Concomitant]
  7. FISH OIL [Concomitant]
  8. IRON [Concomitant]
  9. ANTIBIOTICS [Concomitant]
     Indication: COW^S MILK INTOLERANCE

REACTIONS (6)
  - Dysphagia [Unknown]
  - Abdominal discomfort [Unknown]
  - Flatulence [Unknown]
  - Intentional drug misuse [Unknown]
  - Off label use [Unknown]
  - Drug dose omission [Unknown]
